FAERS Safety Report 23947662 (Version 1)
Quarter: 2024Q2

REPORT INFORMATION
  Report Type: Report from Study
  Country: FR (occurrence: FR)
  Receive Date: 20240606
  Receipt Date: 20240606
  Transmission Date: 20240716
  Serious: Yes (Other)
  Sender: FDA-Public Use
  Company Number: FR-BIOGEN-2024BI01267441

PATIENT
  Sex: Male
  Weight: 72 kg

DRUGS (2)
  1. OMAVELOXOLONE [Suspect]
     Active Substance: OMAVELOXOLONE
     Indication: Friedreich^s ataxia
     Dosage: 3 CAPSULES OF 50MG
     Route: 050
     Dates: start: 20240203
  2. OMAVELOXOLONE [Suspect]
     Active Substance: OMAVELOXOLONE
     Dosage: 3 CAPSULES OF 50MG
     Route: 050
     Dates: start: 20240213

REACTIONS (4)
  - Hepatic cytolysis [Not Recovered/Not Resolved]
  - Trance [Not Recovered/Not Resolved]
  - Abdominal pain [Not Recovered/Not Resolved]
  - Headache [Recovered/Resolved]
